FAERS Safety Report 16534150 (Version 1)
Quarter: 2019Q3

REPORT INFORMATION
  Report Type: Report from Study
  Country: BR (occurrence: BR)
  Receive Date: 20190705
  Receipt Date: 20190705
  Transmission Date: 20191004
  Serious: Yes (Other)
  Sender: FDA-Public Use
  Company Number: BR-BAYER-2019-111818

PATIENT
  Age: 83 Year
  Sex: Female
  Weight: 55 kg

DRUGS (9)
  1. PARAFFIN SOFT [Concomitant]
     Active Substance: PARAFFIN
     Indication: DIVERTICULUM
     Dosage: 800 MG, BID
  2. DORENE [Concomitant]
     Active Substance: PREGABALIN
     Indication: SPINAL FLATTENING
     Dosage: 225 MG, QD
  3. PURAN [Concomitant]
     Active Substance: LEVOTHYROXINE SODIUM
     Dosage: UNK UNK, QD
  4. RESTIVA [Concomitant]
     Active Substance: BUPRENORPHINE
     Indication: ANALGESIC THERAPY
     Dosage: 5 MG, OW
  5. NEXAVAR [Suspect]
     Active Substance: SORAFENIB
     Indication: HEPATOCELLULAR CARCINOMA
     Dosage: 2 DF, QD
     Dates: start: 20190521
  6. LONIUM [Concomitant]
     Active Substance: OTILONIUM BROMIDE
     Indication: ABDOMINAL PAIN
     Dosage: UNK
  7. VITAMIN D [VITAMIN D NOS] [Concomitant]
     Active Substance: VITAMIN D NOS
     Dosage: 1 DF, OW
     Route: 048
  8. LORAZEPAM. [Concomitant]
     Active Substance: LORAZEPAM
     Dosage: 2 MG, QD
     Route: 048
  9. OMEPRAZOLE. [Concomitant]
     Active Substance: OMEPRAZOLE
     Dosage: 40 MG, QD
     Route: 048

REACTIONS (9)
  - Thrombocytopenia [None]
  - Urinary tract infection [None]
  - Livedo reticularis [Not Recovered/Not Resolved]
  - Off label use [None]
  - Leukopenia [None]
  - Pneumonia [None]
  - Influenza [None]
  - Sinusitis [None]
  - Immunodeficiency [None]

NARRATIVE: CASE EVENT DATE: 20190521
